FAERS Safety Report 7786477-2 (Version None)
Quarter: 2011Q3

REPORT INFORMATION
  Report Type: 
  Country: None (occurrence: None)
  Receive Date: 20110928
  Receipt Date: 20110928
  Transmission Date: 20111222
  Serious: Yes (Hospitalization)
  Sender: FDA-Public Use
  Company Number: None

PATIENT
  Age: 90 Year
  Sex: Male
  Weight: 88.3 kg

DRUGS (1)
  1. LISINOPRIL [Suspect]
     Indication: HYPERTENSION
     Dosage: 2.5 MG EVERY DAY PO
     Route: 048
     Dates: start: 20110307, end: 20110411

REACTIONS (5)
  - RASH ERYTHEMATOUS [None]
  - BLISTER [None]
  - POOR PERIPHERAL CIRCULATION [None]
  - VASCULITIS [None]
  - PULSE VOLUME DECREASED [None]
